FAERS Safety Report 4528925-7 (Version None)
Quarter: 2004Q4

REPORT INFORMATION
  Report Type: 
  Country: None (occurrence: None)
  Receive Date: 20041214
  Receipt Date: 20041129
  Transmission Date: 20050328
  Serious: Yes (Death)
  Sender: FDA-Public Use
  Company Number: SUSI-2004-00843

PATIENT
  Age: 38 Year

DRUGS (2)
  1. CARBAMAZEPINE EXTENDED-RELEASE (CARBAMAZEPINE) CAPSULE XR [Suspect]
  2. AMITRIPTYLINE HCL [Suspect]

REACTIONS (2)
  - COMPLETED SUICIDE [None]
  - MULTIPLE DRUG OVERDOSE INTENTIONAL [None]
